FAERS Safety Report 9014219 (Version 6)
Quarter: 2014Q3

REPORT INFORMATION
  Report Type: Spontaneous
  Country: US (occurrence: US)
  Receive Date: 20130115
  Receipt Date: 20140808
  Transmission Date: 20150326
  Serious: Yes (Hospitalization, Disabling, Other)
  Sender: FDA-Public Use
  Company Number: US-009507513-1301USA005197

PATIENT
  Sex: Female
  Weight: 172.79 kg

DRUGS (6)
  1. NUVARING [Suspect]
     Active Substance: ETHINYL ESTRADIOL\ETONOGESTREL
     Indication: DYSFUNCTIONAL UTERINE BLEEDING
     Dosage: 0.12 MG-0.015 MG/24 HR X 3 WEEKS, REMOVE X 1 WEEK
     Route: 067
     Dates: start: 20071012, end: 200712
  2. LEVOXYL [Concomitant]
     Active Substance: LEVOTHYROXINE SODIUM
     Indication: HYPOTHYROIDISM
     Dosage: 300 + 50 MICROGRAM, QD
     Route: 048
  3. FERROUS SULFATE [Concomitant]
     Active Substance: FERROUS SULFATE\FERROUS SULFATE, DRIED
     Indication: IRON DEFICIENCY ANAEMIA
     Dosage: 324 MG, QD AT LEAST 4 HOURS AFTER THYROID MEDICATION
     Route: 048
  4. VITAMINS (UNSPECIFIED) [Concomitant]
     Active Substance: VITAMINS
     Indication: ROUTINE HEALTH MAINTENANCE
     Route: 048
  5. PROVERA [Concomitant]
     Active Substance: MEDROXYPROGESTERONE ACETATE
     Indication: PRODUCT USED FOR UNKNOWN INDICATION
     Dosage: 10 MG, QD X 10 DAYS
     Route: 048
     Dates: start: 20071020, end: 20071029
  6. DYAZIDE [Concomitant]
     Active Substance: HYDROCHLOROTHIAZIDE\TRIAMTERENE
     Indication: PRODUCT USED FOR UNKNOWN INDICATION
     Dosage: 37.5 MG/25 MG, QD
     Route: 048

REACTIONS (30)
  - Chest pain [Unknown]
  - Increased tendency to bruise [Unknown]
  - Viral upper respiratory tract infection [Unknown]
  - Asthenia [Unknown]
  - Dyspnoea [Unknown]
  - Off label use [Recovered/Resolved]
  - Lymphadenopathy [Unknown]
  - Musculoskeletal chest pain [Unknown]
  - Pain [Unknown]
  - Malaise [Unknown]
  - Muscle spasms [Unknown]
  - Abdominal pain [Unknown]
  - Laziness [Unknown]
  - Pulmonary oedema [Unknown]
  - Coagulopathy [Unknown]
  - Pollakiuria [Unknown]
  - Pneumonia [Unknown]
  - Pulmonary embolism [Unknown]
  - Acute coronary syndrome [Unknown]
  - Night sweats [Unknown]
  - Abdominal pain upper [Unknown]
  - Oedema peripheral [Not Recovered/Not Resolved]
  - Sinusitis [Unknown]
  - Epistaxis [Unknown]
  - Rash [Unknown]
  - Pulmonary embolism [Recovering/Resolving]
  - Haemoptysis [Unknown]
  - Otitis media [Unknown]
  - Gingival bleeding [Unknown]
  - Hypoaesthesia [Unknown]

NARRATIVE: CASE EVENT DATE: 2007
